FAERS Safety Report 7975563-X (Version None)
Quarter: 2011Q4

REPORT INFORMATION
  Report Type: 
  Country: None (occurrence: None)
  Receive Date: 20111213
  Receipt Date: 20111003
  Transmission Date: 20120403
  Serious: No
  Sender: FDA-Public Use
  Company Number: US-AMGEN-USASP2011050932

PATIENT
  Age: 63 Year
  Sex: Female

DRUGS (6)
  1. ENBREL [Suspect]
     Indication: RHEUMATOID ARTHRITIS
     Dosage: 50 MG, QWK
     Dates: start: 20110105
  2. OMEPRAZOLE [Concomitant]
     Dosage: 2 MG, UNK
  3. MOTRIN [Concomitant]
  4. ARAVA [Concomitant]
  5. METOPROLOL TARTRATE [Concomitant]
  6. ASPIRIN [Concomitant]

REACTIONS (4)
  - DEATH OF RELATIVE [None]
  - SINUSITIS [None]
  - EAR INFECTION [None]
  - BRONCHITIS [None]
